FAERS Safety Report 4861642-2 (Version None)
Quarter: 2005Q4

REPORT INFORMATION
  Report Type: 
  Country: None (occurrence: None)
  Receive Date: 20051129
  Receipt Date: 20050825
  Transmission Date: 20060501
  Serious: Yes (Other)
  Sender: FDA-Public Use
  Company Number: WAES 0507USA01692

PATIENT
  Age: 56 Year
  Sex: Male
  Weight: 87.5442 kg

DRUGS (3)
  1. VYTORIN [Suspect]
     Indication: BLOOD CHOLESTEROL INCREASED
     Dosage: 10-20 MG/PO
     Route: 048
     Dates: start: 20050309, end: 20050401
  2. VYTORIN [Suspect]
     Indication: HYPERLIPIDAEMIA
     Dosage: 10-20 MG/PO
     Route: 048
     Dates: start: 20050309, end: 20050401
  3. ANTIMICROBIAL [Concomitant]

REACTIONS (4)
  - FATIGUE [None]
  - RENAL FAILURE [None]
  - RHABDOMYOLYSIS [None]
  - TEMPERATURE INTOLERANCE [None]
